FAERS Safety Report 7123712-8 (Version None)
Quarter: 2010Q4

REPORT INFORMATION
  Report Type: 
  Country: None (occurrence: None)
  Receive Date: 20101125
  Receipt Date: 20101111
  Transmission Date: 20110411
  Serious: Yes (Other)
  Sender: FDA-Public Use
  Company Number: PHHY2010US77019

PATIENT
  Sex: Male
  Weight: 77 kg

DRUGS (2)
  1. EXJADE [Suspect]
     Indication: NEOPLASM
     Dosage: 1000 MG, UNK
     Route: 048
     Dates: start: 20100901, end: 20101001
  2. ANTIFUNGAL DRUGS [Concomitant]
     Route: 042

REACTIONS (2)
  - BRONCHOPULMONARY ASPERGILLOSIS [None]
  - CEREBRAL ASPERGILLOSIS [None]
